FAERS Safety Report 25486775 (Version 1)
Quarter: 2025Q2

REPORT INFORMATION
  Report Type: Spontaneous
  Country: AU (occurrence: AU)
  Receive Date: 20250627
  Receipt Date: 20250627
  Transmission Date: 20250717
  Serious: Yes (Other)
  Sender: SANOFI AVENTIS
  Company Number: AU-SA-2025SA177154

PATIENT
  Age: 52 Year
  Sex: Female

DRUGS (8)
  1. LEFLUNOMIDE [Suspect]
     Active Substance: LEFLUNOMIDE
     Indication: Psoriatic arthropathy
  2. SULFASALAZINE [Suspect]
     Active Substance: SULFASALAZINE
     Indication: Arthritis
     Dosage: 2 DF, QD
     Dates: start: 20190512
  3. SULFASALAZINE [Suspect]
     Active Substance: SULFASALAZINE
     Indication: Ankylosing spondylitis
  4. METHOTREXATE [Suspect]
     Active Substance: METHOTREXATE
     Indication: Psoriatic arthropathy
     Dosage: 1 DF, QW
     Dates: start: 20200618, end: 20210909
  5. PREDNISOLONE [Suspect]
     Active Substance: PREDNISOLONE
     Indication: Product used for unknown indication
     Dates: start: 20181124, end: 201909
  6. FOLIC ACID [Suspect]
     Active Substance: FOLIC ACID
     Indication: Product used for unknown indication
  7. ADALIMUMAB [Suspect]
     Active Substance: ADALIMUMAB
     Indication: Product used for unknown indication
     Dates: start: 201712, end: 201804
  8. SECUKINUMAB [Suspect]
     Active Substance: SECUKINUMAB
     Indication: Product used for unknown indication
     Dates: start: 20170504, end: 20170928

REACTIONS (26)
  - Ankylosing spondylitis [Unknown]
  - Psoriatic arthropathy [Unknown]
  - Urosepsis [Unknown]
  - Kidney infection [Unknown]
  - Sepsis [Unknown]
  - Sjogren^s syndrome [Unknown]
  - Arteritis [Unknown]
  - Costochondritis [Unknown]
  - C-reactive protein increased [Unknown]
  - Liver function test abnormal [Unknown]
  - Lung disorder [Unknown]
  - Psoriasis [Unknown]
  - Sacroiliitis [Unknown]
  - Spondylitis [Unknown]
  - Synovitis [Unknown]
  - Tenderness [Unknown]
  - Tendon pain [Unknown]
  - Thyroid mass [Unknown]
  - Dyspepsia [Unknown]
  - Pyrexia [Unknown]
  - Alopecia [Unknown]
  - Anaemia [Unknown]
  - Headache [Unknown]
  - Urinary tract infection [Unknown]
  - Vasculitis [Unknown]
  - Therapeutic response decreased [Unknown]

NARRATIVE: CASE EVENT DATE: 20180701
